FAERS Safety Report 23196065 (Version 1)
Quarter: 2023Q4

REPORT INFORMATION
  Report Type: Report from Study
  Country: BR (occurrence: BR)
  Receive Date: 20231117
  Receipt Date: 20231117
  Transmission Date: 20240110
  Serious: Yes (Other)
  Sender: FDA-Public Use
  Company Number: BR-002147023-NVSC2023BR244053

PATIENT
  Sex: Female

DRUGS (2)
  1. ENTRESTO [Suspect]
     Active Substance: SACUBITRIL\VALSARTAN
     Indication: Product used for unknown indication
     Dosage: 50 MG/KG
     Route: 065
  2. ENTRESTO [Suspect]
     Active Substance: SACUBITRIL\VALSARTAN
     Dosage: E THROUGH SUS (BRAZILIAN HEALTHCARE PUBLIC SYSTEM)
     Route: 065

REACTIONS (5)
  - Hypertension [Recovered/Resolved]
  - Hypotension [Recovered/Resolved]
  - Feeling hot [Unknown]
  - Erythema [Unknown]
  - Product storage error [Recovered/Resolved]
